FAERS Safety Report 4862563-1 (Version None)
Quarter: 2005Q4

REPORT INFORMATION
  Report Type: 
  Country: None (occurrence: None)
  Receive Date: 20051221
  Receipt Date: 20051214
  Transmission Date: 20060501
  Serious: Yes (Life-Threatening, Hospitalization)
  Sender: FDA-Public Use
  Company Number: FR-GLAXOSMITHKLINE-B0403793A

PATIENT
  Sex: Male
  Weight: 2.6 kg

DRUGS (3)
  1. EPIVIR [Suspect]
     Indication: HIV INFECTION
     Dosage: 6MGK PER DAY
     Route: 048
     Dates: start: 20050927, end: 20051014
  2. ZIAGEN [Suspect]
     Indication: HIV INFECTION
     Dosage: 12MGK PER DAY
     Route: 048
     Dates: start: 20050927, end: 20051014
  3. KALETRA [Concomitant]
     Indication: HIV INFECTION
     Dosage: .4ML THREE TIMES PER DAY
     Route: 048
     Dates: start: 20050927, end: 20051014

REACTIONS (6)
  - ANAEMIA [None]
  - DIARRHOEA [None]
  - EATING DISORDER [None]
  - ESCHERICHIA INFECTION [None]
  - PYREXIA [None]
  - SOMNOLENCE [None]
